FAERS Safety Report 6219259-3 (Version None)
Quarter: 2009Q2

REPORT INFORMATION
  Report Type: 
  Country: None (occurrence: None)
  Receive Date: 20090609
  Receipt Date: 20090601
  Transmission Date: 20091009
  Serious: Yes (Other)
  Sender: FDA-Public Use
  Company Number: US-ROCHE-612098

PATIENT
  Sex: Male

DRUGS (5)
  1. PEG-INTERFERON A-2A (RO 25-8310) [Suspect]
     Indication: HEPATITIS C
     Dosage: FORM: PRE-FILLED SYRINGES
     Route: 065
     Dates: start: 20081215, end: 20090116
  2. PEG-INTERFERON A-2A (RO 25-8310) [Suspect]
     Route: 065
     Dates: start: 20090209
  3. PEG-INTERFERON A-2A (RO 25-8310) [Suspect]
     Dosage: TREATMENT SUSPENDED FOR 2 WEEKS IN MARCH 2009
     Route: 065
     Dates: end: 20090301
  4. PEG-INTERFERON A-2A (RO 25-8310) [Suspect]
     Route: 065
     Dates: end: 20090501
  5. RIBAPAK [Suspect]
     Indication: HEPATITIS C
     Dosage: DIVIDED DOSES
     Route: 065
     Dates: start: 20081215, end: 20090501

REACTIONS (17)
  - ANOREXIA [None]
  - ANXIETY [None]
  - ASTHENIA [None]
  - CHEST X-RAY ABNORMAL [None]
  - DYSPNOEA [None]
  - ENDODONTIC PROCEDURE [None]
  - FATIGUE [None]
  - IMPATIENCE [None]
  - INJECTION SITE RASH [None]
  - INSOMNIA [None]
  - IRRITABILITY [None]
  - MOOD SWINGS [None]
  - MUSCLE SPASMS [None]
  - PERIPHERAL COLDNESS [None]
  - TOOTHACHE [None]
  - WEIGHT DECREASED [None]
  - WHITE BLOOD CELL COUNT DECREASED [None]
